FAERS Safety Report 13050991 (Version 5)
Quarter: 2017Q2

REPORT INFORMATION
  Report Type: Spontaneous
  Country: US (occurrence: US)
  Receive Date: 20161221
  Receipt Date: 20170403
  Transmission Date: 20170830
  Serious: No
  Sender: FDA-Public Use
  Company Number: US-PFIZER INC-2016586761

PATIENT
  Age: 65 Year
  Sex: Male
  Weight: 122 kg

DRUGS (4)
  1. PRADAXA [Concomitant]
     Active Substance: DABIGATRAN ETEXILATE MESYLATE
     Indication: ANTICOAGULANT THERAPY
     Dosage: 150 MG TWICE DAILY
     Route: 048
     Dates: start: 201307
  2. TIKOSYN [Suspect]
     Active Substance: DOFETILIDE
     Dosage: 500 MCG TWICE DAILY
     Route: 048
     Dates: start: 20161213
  3. TIKOSYN [Suspect]
     Active Substance: DOFETILIDE
     Dosage: 250 MCG TWICE DAILY (IN THE MORNING AND AT NIGHT)
     Route: 048
     Dates: end: 20161212
  4. TIKOSYN [Suspect]
     Active Substance: DOFETILIDE
     Indication: ATRIAL FIBRILLATION
     Dosage: 500 MCG TWICE DAILY (IN HOSPITAL)
     Route: 048
     Dates: start: 20141223

REACTIONS (1)
  - Drug ineffective [Recovered/Resolved]

NARRATIVE: CASE EVENT DATE: 20161213
